FAERS Safety Report 6453826-7 (Version None)
Quarter: 2009Q4

REPORT INFORMATION
  Report Type: 
  Country: None (occurrence: None)
  Receive Date: 20091124
  Receipt Date: 20091119
  Transmission Date: 20100525
  Serious: Yes (Hospitalization)
  Sender: FDA-Public Use
  Company Number: US-ABBOTT-09P-163-0609389-00

PATIENT
  Sex: Female
  Weight: 108.96 kg

DRUGS (3)
  1. HUMIRA [Suspect]
     Indication: RHEUMATOID ARTHRITIS
     Route: 058
     Dates: start: 20090604, end: 20090901
  2. HUMIRA [Suspect]
     Route: 058
  3. UNKNOWN BLOOD THINNERS [Concomitant]
     Route: 058
     Dates: start: 20091002, end: 20091007

REACTIONS (3)
  - BACK PAIN [None]
  - PLEURISY [None]
  - PNEUMONIA [None]
